FAERS Safety Report 15271169 (Version 3)
Quarter: 2018Q3

REPORT INFORMATION
  Report Type: Spontaneous
  Country: CN (occurrence: CN)
  Receive Date: 20180813
  Receipt Date: 20180820
  Transmission Date: 20181010
  Serious: Yes (Hospitalization, Other)
  Sender: FDA-Public Use
  Company Number: CN-PFIZER INC-2018324251

PATIENT
  Age: 48 Year
  Sex: Female
  Weight: 54 kg

DRUGS (6)
  1. CORDARONE [Suspect]
     Active Substance: AMIODARONE HYDROCHLORIDE
     Indication: CARDIAC DYSFUNCTION
     Dosage: 0.2 G, DAILY (QD)
     Route: 048
     Dates: start: 20171205, end: 20180618
  2. METOPROLOL TARTRATE. [Concomitant]
     Active Substance: METOPROLOL TARTRATE
     Indication: CARDIAC DYSFUNCTION
     Dosage: 6.25 MG, 2X/DAY
     Route: 048
     Dates: start: 20171205, end: 20180618
  3. TRIMETAZIDINE DIHYDROCHLORIDE [Concomitant]
     Active Substance: TRIMETAZIDINE DIHYDROCHLORIDE
     Indication: CARDIAC DYSFUNCTION
     Dosage: 20 MG, 3X/DAY (TID)
     Route: 048
     Dates: start: 20171205, end: 20180618
  4. BUMETANIDE. [Concomitant]
     Active Substance: BUMETANIDE
     Indication: CARDIAC DYSFUNCTION
     Dosage: 0.1 MG, DAILY (QD)
     Route: 048
     Dates: start: 20171205, end: 20180618
  5. PERINDOPRIL [Concomitant]
     Active Substance: PERINDOPRIL
     Indication: CARDIAC DYSFUNCTION
     Dosage: 2 MG, DAILY (QD)
     Route: 048
     Dates: start: 20171205, end: 20180618
  6. SPIRONOLACTONE. [Concomitant]
     Active Substance: SPIRONOLACTONE
     Indication: CARDIAC DYSFUNCTION
     Dosage: 20 MG, DAILY (QD)
     Route: 048
     Dates: start: 20171205, end: 20180618

REACTIONS (5)
  - Congestive cardiomyopathy [Unknown]
  - Nasopharyngitis [Unknown]
  - Hepatic function abnormal [Recovering/Resolving]
  - Condition aggravated [Unknown]
  - Lung infection [Unknown]

NARRATIVE: CASE EVENT DATE: 2018
